FAERS Safety Report 24271759 (Version 1)
Quarter: 2024Q3

REPORT INFORMATION
  Report Type: Spontaneous
  Country: US (occurrence: US)
  Receive Date: 20240902
  Receipt Date: 20240902
  Transmission Date: 20241016
  Serious: No
  Sender: EMCURE
  Company Number: US-AVET LIFESCIENCES LTD-2024-AVET-000300

PATIENT

DRUGS (1)
  1. HYDROXYZINE [Suspect]
     Active Substance: HYDROXYZINE HYDROCHLORIDE
     Indication: Anxiety
     Dosage: 3 OR 4 TIMES A DAY
     Route: 065

REACTIONS (3)
  - Anxiety [Unknown]
  - Disturbance in attention [Unknown]
  - Drug ineffective [Unknown]
